FAERS Safety Report 9315115 (Version 1)
Quarter: 2013Q2

REPORT INFORMATION
  Report Type: Spontaneous
  Country: US (occurrence: US)
  Receive Date: 20130529
  Receipt Date: 20130529
  Transmission Date: 20140414
  Serious: No
  Sender: FDA-Public Use
  Company Number: US-MYLANLABS-2013S1005194

PATIENT
  Age: 4 Year
  Sex: Female

DRUGS (1)
  1. MONTELUKAST SODIUM [Suspect]

REACTIONS (1)
  - Drug ineffective [Not Recovered/Not Resolved]
